FAERS Safety Report 9056913 (Version 10)
Quarter: 2013Q3

REPORT INFORMATION
  Report Type: Report from Study
  Country: JP (occurrence: JP)
  Receive Date: 20130130
  Receipt Date: 20130807
  Transmission Date: 20140515
  Serious: Yes (Hospitalization)
  Sender: FDA-Public Use
  Company Number: JP-MERCK-1211JPN008708

PATIENT
  Age: 66 Year
  Sex: Male
  Weight: 60.2 kg

DRUGS (8)
  1. VORINOSTAT [Suspect]
     Indication: B-CELL LYMPHOMA
     Dosage: 200 MG, BID, DAY 1 THROUGH 14 OF A 21 DAY CYCLE
     Route: 048
     Dates: start: 20091202, end: 20091215
  2. VORINOSTAT [Suspect]
     Dosage: 100 MG AND 200 MG PER DAY, DAY 1 THROUGH 14 OF A 21 DAY CYCLE
     Route: 048
     Dates: start: 20100106, end: 20101224
  3. VORINOSTAT [Suspect]
     Dosage: 100 MG, BID, DAY 1 THROUGH 14 OF A 21 DAY CYCLE
     Route: 048
     Dates: start: 20110105, end: 20110118
  4. VORINOSTAT [Suspect]
     Dosage: 100 MG, BID, DAY 1 THROUGH 14 OF A 21 DAY CYCLE
     Route: 048
     Dates: start: 20110128, end: 20110208
  5. VORINOSTAT [Suspect]
     Dosage: 100 MG AND 200 MG PER DAY, DAY 1 THROUGH 14 OF A 21 DAY CYCLE
     Route: 048
     Dates: start: 20110216, end: 20110301
  6. VORINOSTAT [Suspect]
     Dosage: 100 MG, BID, DAY 1 THROUGH 14 OF A 21 DAY CYCLE
     Route: 048
     Dates: start: 20110316, end: 20110617
  7. VORINOSTAT [Suspect]
     Dosage: 100 MG, ONCE
     Route: 048
     Dates: start: 20110618, end: 20110618
  8. VORINOSTAT [Suspect]
     Dosage: 100 MG, BID, DAY 1 THROUGH 14 OF A 21 DAY CYCLE
     Route: 048
     Dates: start: 20110619, end: 20120904

REACTIONS (3)
  - Colon cancer [Recovered/Resolved]
  - Metastases to lung [Recovering/Resolving]
  - Metastases to liver [Recovering/Resolving]
